FAERS Safety Report 6049244-6 (Version None)
Quarter: 2009Q1

REPORT INFORMATION
  Report Type: 
  Country: None (occurrence: None)
  Receive Date: 20090123
  Receipt Date: 20090114
  Transmission Date: 20090719
  Serious: Yes (Life-Threatening)
  Sender: FDA-Public Use
  Company Number: HR-ABBOTT-09P-216-0497516-00

PATIENT
  Age: 59 Year
  Sex: Male
  Weight: 81 kg

DRUGS (5)
  1. ZEMPLAR [Suspect]
     Indication: HYPERPARATHYROIDISM
     Dates: start: 20071129, end: 20080515
  2. POTASSIUM CARBONATE [Concomitant]
     Indication: HYPERPHOSPHATAEMIA
     Dosage: 4G + 3G PER OS
     Dates: start: 20080308
  3. POTASSIUM CARBONATE [Concomitant]
     Indication: HYPERPARATHYROIDISM SECONDARY
  4. RENAGEL [Concomitant]
     Indication: HYPERPHOSPHATAEMIA
     Dates: start: 20080412
  5. RENAGEL [Concomitant]
     Indication: HYPERPARATHYROIDISM SECONDARY

REACTIONS (1)
  - LUNG NEOPLASM MALIGNANT [None]
